FAERS Safety Report 23936447 (Version 1)
Quarter: 2024Q2

REPORT INFORMATION
  Report Type: Other
  Country: KR (occurrence: KR)
  Receive Date: 20240604
  Receipt Date: 20240604
  Transmission Date: 20240716
  Serious: Yes (Other)
  Sender: FDA-Public Use
  Company Number: KR-ASTELLAS-2024US015881

PATIENT
  Sex: Male

DRUGS (1)
  1. XTANDI [Suspect]
     Active Substance: ENZALUTAMIDE
     Indication: Polycythaemia vera
     Route: 065
     Dates: start: 20230601

REACTIONS (2)
  - Leukopenia [Recovered/Resolved]
  - Product use in unapproved indication [Unknown]

NARRATIVE: CASE EVENT DATE: 20230601
